FAERS Safety Report 5344736-7 (Version None)
Quarter: 2007Q2

REPORT INFORMATION
  Report Type: 
  Country: None (occurrence: None)
  Receive Date: 20070604
  Receipt Date: 20070525
  Transmission Date: 20071010
  Serious: Yes (Life-Threatening, Hospitalization)
  Sender: FDA-Public Use
  Company Number: CL-ABBOTT-07P-034-0369461-00

PATIENT
  Sex: Male
  Weight: 59 kg

DRUGS (3)
  1. KALETRA [Suspect]
     Indication: HIV INFECTION
     Route: 048
     Dates: start: 20070130, end: 20070521
  2. LAMIVUDINE [Concomitant]
     Indication: HIV INFECTION
     Route: 048
     Dates: start: 20070130, end: 20070521
  3. ZIDOVUDINE [Concomitant]
     Indication: HIV INFECTION
     Route: 048
     Dates: start: 20070130, end: 20070521

REACTIONS (6)
  - ANORECTAL INFECTION [None]
  - GENERAL PHYSICAL HEALTH DETERIORATION [None]
  - PNEUMOCOCCAL BACTERAEMIA [None]
  - PYREXIA [None]
  - RECTAL DISCHARGE [None]
  - SEPSIS [None]
